FAERS Safety Report 10261506 (Version 1)
Quarter: 2014Q2

REPORT INFORMATION
  Report Type: Spontaneous
  Country: US (occurrence: US)
  Receive Date: 20140626
  Receipt Date: 20140626
  Transmission Date: 20141212
  Serious: No
  Sender: FDA-Public Use
  Company Number: US-MYLANLABS-2013S1011632

PATIENT
  Sex: Female

DRUGS (1)
  1. PERFOROMIST (FORMOTEROL FUMARATE) INHALATION SOLUTION [Suspect]
     Indication: CHRONIC OBSTRUCTIVE PULMONARY DISEASE
     Route: 055

REACTIONS (3)
  - Dry mouth [Not Recovered/Not Resolved]
  - Oral discomfort [Recovering/Resolving]
  - Oropharyngeal pain [Not Recovered/Not Resolved]
